FAERS Safety Report 7652110-3 (Version None)
Quarter: 2011Q3

REPORT INFORMATION
  Report Type: 
  Country: None (occurrence: None)
  Receive Date: 20110803
  Receipt Date: 20110726
  Transmission Date: 20111222
  Serious: Yes (Death, Life-Threatening, Hospitalization, Other)
  Sender: FDA-Public Use
  Company Number: US-CELGENEUS-087-50794-11043076

PATIENT
  Sex: Male

DRUGS (4)
  1. VIDAZA [Suspect]
     Indication: MYELODYSPLASTIC SYNDROME
     Dosage: 120 MILLIGRAM/SQ. METER
     Route: 058
     Dates: start: 20110329, end: 20110404
  2. ITRACONAZOLE [Concomitant]
     Dosage: 200 MILLIGRAM
     Route: 041
     Dates: start: 20110419
  3. NEUPOGEN [Concomitant]
     Route: 065
  4. HABEKACIN [Concomitant]
     Dosage: 300 MILLIGRAM
     Route: 041
     Dates: start: 20110414

REACTIONS (8)
  - NEUTROPHIL COUNT DECREASED [None]
  - INFECTION [None]
  - PYREXIA [None]
  - GENITAL HERPES [None]
  - FEBRILE NEUTROPENIA [None]
  - PLATELET COUNT DECREASED [None]
  - STOMATITIS [None]
  - NECROTISING FASCIITIS [None]
